FAERS Safety Report 12228832 (Version 2)
Quarter: 2016Q4

REPORT INFORMATION
  Report Type: Report from Study
  Country: BR (occurrence: BR)
  Receive Date: 20160401
  Receipt Date: 20161027
  Transmission Date: 20170207
  Serious: Yes (Other)
  Sender: FDA-Public Use
  Company Number: PHHY2016BR042246

PATIENT
  Sex: Female
  Weight: 60 kg

DRUGS (2)
  1. EXJADE [Suspect]
     Active Substance: DEFERASIROX
     Indication: THALASSAEMIA
     Dosage: 2000 MG, QD (35 MG/KG QD (4DF OF 500 MG))
     Route: 048
     Dates: end: 2013
  2. EXJADE [Suspect]
     Active Substance: DEFERASIROX
     Dosage: 35 MG/KG, QD (4 DF OF 500MG)
     Route: 048
     Dates: end: 2014

REACTIONS (1)
  - Benign ovarian tumour [Recovered/Resolved]
